FAERS Safety Report 18960863 (Version 1)
Quarter: 2021Q1

REPORT INFORMATION
  Report Type: Spontaneous
  Country: US (occurrence: US)
  Receive Date: 20210302
  Receipt Date: 20210302
  Transmission Date: 20210420
  Serious: No
  Sender: FDA-Public Use
  Company Number: US-NOVOPROD-747671

PATIENT
  Age: 59 Year
  Sex: Female

DRUGS (1)
  1. SAXENDA [Suspect]
     Active Substance: LIRAGLUTIDE
     Indication: WEIGHT DECREASED
     Dosage: 3 MG
     Route: 058
     Dates: start: 20190328, end: 202008

REACTIONS (5)
  - Weight increased [Recovered/Resolved]
  - Increased appetite [Unknown]
  - Drug ineffective [Unknown]
  - Weight loss poor [Recovered/Resolved]
  - Product quality issue [Unknown]
